FAERS Safety Report 13877912 (Version 1)
Quarter: 2017Q3

REPORT INFORMATION
  Report Type: Spontaneous
  Country: CN (occurrence: CN)
  Receive Date: 20170817
  Receipt Date: 20170817
  Transmission Date: 20171127
  Serious: Yes (Death, Hospitalization, Other)
  Sender: FDA-Public Use
  Company Number: CN-BAYER-2017-151653

PATIENT
  Age: 37 Year
  Sex: Female

DRUGS (1)
  1. NEXAVAR [Suspect]
     Active Substance: SORAFENIB
     Indication: HEPATOCELLULAR CARCINOMA
     Dosage: 400 MG, BID
     Route: 048
     Dates: start: 20140122, end: 201610

REACTIONS (5)
  - Metastases to adrenals [None]
  - Metastases to bone [None]
  - Hepatocellular carcinoma [None]
  - Hepatocellular carcinoma [None]
  - Death [Fatal]

NARRATIVE: CASE EVENT DATE: 201411
